FAERS Safety Report 11144313 (Version 1)
Quarter: 2015Q2

REPORT INFORMATION
  Report Type: Spontaneous
  Country: US (occurrence: None)
  Receive Date: 20150527
  Receipt Date: 20150527
  Transmission Date: 20150821
  Serious: No
  Sender: FDA-Public Use
  Company Number: None

PATIENT

DRUGS (3)
  1. ALCAINE [Suspect]
     Active Substance: PROPARACAINE HYDROCHLORIDE
  2. COSOPT [Suspect]
     Active Substance: DORZOLAMIDE HYDROCHLORIDE\TIMOLOL MALEATE
  3. GOLDMAN TONOMETER [Concomitant]

REACTIONS (3)
  - Injury associated with device [None]
  - Blindness [None]
  - Intraocular pressure increased [None]
